FAERS Safety Report 6291556-5 (Version None)
Quarter: 2009Q3

REPORT INFORMATION
  Report Type: 
  Country: None (occurrence: None)
  Receive Date: 20090730
  Receipt Date: 20090721
  Transmission Date: 20100115
  Serious: Yes (Other)
  Sender: FDA-Public Use
  Company Number: PHHY2009FR30351

PATIENT
  Age: 40 Year
  Sex: Male

DRUGS (7)
  1. LEPONEX [Suspect]
     Dosage: 250 MG, ONCE/SINGLE
  2. RIVOTRIL [Suspect]
     Dosage: 3 MG, UNK
  3. NOCTAMID [Suspect]
     Dosage: 2 MG, ONCE/SINGLE
  4. TEGRETOL [Concomitant]
  5. DEPAKENE [Concomitant]
  6. KEPPRA [Concomitant]
  7. IMOVANE [Concomitant]

REACTIONS (2)
  - DRUG DISPENSING ERROR [None]
  - GRAND MAL CONVULSION [None]
